FAERS Safety Report 7210847-4 (Version None)
Quarter: 2011Q1

REPORT INFORMATION
  Report Type: 
  Country: None (occurrence: None)
  Receive Date: 20110105
  Receipt Date: 20101007
  Transmission Date: 20110831
  Serious: No
  Sender: FDA-Public Use
  Company Number: US-BAYER-201022966BCC

PATIENT
  Sex: Female
  Weight: 106.82 kg

DRUGS (2)
  1. ALEVE (CAPLET) [Suspect]
     Indication: ARTHRITIS
     Dosage: UNK, QD
     Dates: start: 20101004
  2. ALEVE (CAPLET) [Suspect]
     Dosage: 2 DF, OM

REACTIONS (2)
  - NO ADVERSE EVENT [None]
  - ARTHRITIS [None]
